FAERS Safety Report 10178092 (Version 1)
Quarter: 2014Q2

REPORT INFORMATION
  Report Type: Spontaneous
  Country: US (occurrence: US)
  Receive Date: 20140518
  Receipt Date: 20140518
  Transmission Date: 20141212
  Serious: Yes (Other)
  Sender: FDA-Public Use
  Company Number: US-BRISTOL-MYERS SQUIBB COMPANY-20725222

PATIENT
  Age: 45 Year
  Sex: Female
  Weight: 68.03 kg

DRUGS (5)
  1. COUMADIN TABS 5 MG [Suspect]
     Indication: BLOOD VISCOSITY INCREASED
     Dosage: 5MG-5DAYS A WEEK + 2MG-2DAYS A WEEK?FROM 07MAY2014,5MG-3DAYS A WEEK + 2.5MG-4 DAYS A WEEK?ONGOING
     Dates: start: 20140323
  2. METOPROLOL [Concomitant]
  3. IRON SULFATE [Concomitant]
  4. CALCIUM [Concomitant]
  5. NAPROXEN [Concomitant]

REACTIONS (8)
  - Blindness [Unknown]
  - Contusion [Unknown]
  - Headache [Unknown]
  - Bone pain [Unknown]
  - Ocular hyperaemia [Unknown]
  - Epistaxis [Unknown]
  - Dysgeusia [Unknown]
  - Haematoma [Unknown]
